FAERS Safety Report 12187438 (Version 1)
Quarter: 2016Q1

REPORT INFORMATION
  Report Type: Spontaneous
  Country: US (occurrence: US)
  Receive Date: 20160317
  Receipt Date: 20160317
  Transmission Date: 20160526
  Serious: Yes (Hospitalization, Other)
  Sender: FDA-Public Use
  Company Number: US-SMITH AND NEPHEW, INC-2016SMT00231

PATIENT
  Age: 67 Year
  Sex: Female
  Weight: 91.61 kg

DRUGS (2)
  1. UNSPECIFIED MEDICATIONS [Concomitant]
     Active Substance: UNSPECIFIED INGREDIENT
     Dosage: UNK
  2. REGRANEX [Suspect]
     Active Substance: BECAPLERMIN
     Indication: DIABETIC FOOT
     Dosage: UNK UNK, UP TO 3X/DAY
     Route: 061
     Dates: start: 2015

REACTIONS (4)
  - Wound complication [Unknown]
  - Skin necrosis [Unknown]
  - Inappropriate schedule of drug administration [Unknown]
  - Localised infection [Unknown]

NARRATIVE: CASE EVENT DATE: 2015
